FAERS Safety Report 9167335 (Version 1)
Quarter: 2013Q1

REPORT INFORMATION
  Report Type: Spontaneous
  Country: US (occurrence: None)
  Receive Date: 20130314
  Receipt Date: 20130314
  Transmission Date: 20140127
  Serious: No
  Sender: FDA-Public Use
  Company Number: None

PATIENT
  Sex: Female
  Weight: 56.52 kg

DRUGS (1)
  1. INTRON A [Suspect]
     Indication: HYPOTHYROIDISM
     Dosage: 208 MU
     Dates: end: 20120404

REACTIONS (1)
  - Hypothyroidism [None]
